FAERS Safety Report 20725565 (Version 3)
Quarter: 2022Q2

REPORT INFORMATION
  Report Type: Report from Study
  Country: IT (occurrence: IT)
  Receive Date: 20220419
  Receipt Date: 20220512
  Transmission Date: 20220720
  Serious: Yes (Death)
  Sender: FDA-Public Use
  Company Number: IT-PFIZER INC-202200588235

PATIENT
  Age: 84 Year
  Weight: 69 kg

DRUGS (1)
  1. VYNDAQEL [Suspect]
     Active Substance: TAFAMIDIS MEGLUMINE
     Indication: Amyloidosis senile
     Dosage: 61 MG, DAILY
     Route: 048
     Dates: start: 20210903

REACTIONS (1)
  - Death [Fatal]

NARRATIVE: CASE EVENT DATE: 20220415
